FAERS Safety Report 24187027 (Version 1)
Quarter: 2024Q3

REPORT INFORMATION
  Report Type: Spontaneous
  Country: GB (occurrence: GB)
  Receive Date: 20240808
  Receipt Date: 20240808
  Transmission Date: 20241017
  Serious: Yes (Disabling)
  Sender: AUROBINDO
  Company Number: GB-MHRA-WEBRADR-202407290858391260-MPCWR

PATIENT
  Age: 78 Day
  Sex: Female
  Weight: 89 kg

DRUGS (1)
  1. DIGOXIN [Suspect]
     Active Substance: DIGOXIN
     Indication: Atrial fibrillation
     Dosage: 67.5 MILLIGRAM
     Route: 048
     Dates: start: 20240501

REACTIONS (1)
  - Swelling [Not Recovered/Not Resolved]

NARRATIVE: CASE EVENT DATE: 20240619
